FAERS Safety Report 7765197-4 (Version None)
Quarter: 2011Q3

REPORT INFORMATION
  Report Type: 
  Country: None (occurrence: None)
  Receive Date: 20110921
  Receipt Date: 20110916
  Transmission Date: 20111222
  Serious: Yes (Hospitalization)
  Sender: FDA-Public Use
  Company Number: US-GLAXOSMITHKLINE-A0839284A

PATIENT
  Age: 69 Year
  Sex: Female
  Weight: 106.8 kg

DRUGS (5)
  1. AVANDIA [Suspect]
     Indication: TYPE 2 DIABETES MELLITUS
     Dosage: 8MG UNKNOWN
     Route: 048
     Dates: start: 20040101, end: 20071201
  2. INSULIN [Concomitant]
  3. CLONIDINE [Concomitant]
  4. SYNTHROID [Concomitant]
  5. PAXIL [Concomitant]

REACTIONS (5)
  - HYPERLIPIDAEMIA [None]
  - HYPERTENSION [None]
  - CARDIAC FAILURE CONGESTIVE [None]
  - MYOCARDIAL INFARCTION [None]
  - CORONARY ARTERY DISEASE [None]
